FAERS Safety Report 20354092 (Version 1)
Quarter: 2022Q1

REPORT INFORMATION
  Report Type: Spontaneous
  Country: US (occurrence: US)
  Receive Date: 20220120
  Receipt Date: 20220120
  Transmission Date: 20220423
  Serious: No
  Sender: FDA-Public Use
  Company Number: US-GLAXOSMITHKLINE-USCH2022AMR002216

PATIENT
  Sex: Female

DRUGS (5)
  1. VOLTAREN [Suspect]
     Active Substance: DICLOFENAC SODIUM
     Indication: Product used for unknown indication
     Dosage: UNK
  2. HUMIRA [Suspect]
     Active Substance: ADALIMUMAB
     Indication: Crohn^s disease
     Dosage: UNK (CITRATE FREE)
     Route: 058
  3. JANSSEN COVID-19 VACCINE [Concomitant]
     Active Substance: AD26.COV2.S
     Indication: COVID-19 immunisation
     Dosage: UNK (FIRST DOSE 1 IN 1 ONCE)
     Route: 030
     Dates: start: 20210307, end: 20210307
  4. JANSSEN COVID-19 VACCINE [Concomitant]
     Active Substance: AD26.COV2.S
     Dosage: UNK (SECOND DOSE 1 IN 1 ONCE)
     Route: 030
     Dates: start: 2021, end: 2021
  5. JANSSEN COVID-19 VACCINE [Concomitant]
     Active Substance: AD26.COV2.S
     Dosage: UNK (BOOSTER DOSE 1 IN 1 ONCE)
     Route: 030
     Dates: start: 202111, end: 202111

REACTIONS (3)
  - Hypersensitivity [Recovering/Resolving]
  - Scab [Recovering/Resolving]
  - Skin ulcer [Recovering/Resolving]
